FAERS Safety Report 24282354 (Version 1)
Quarter: 2024Q3

REPORT INFORMATION
  Report Type: Spontaneous
  Country: CA (occurrence: CA)
  Receive Date: 20240904
  Receipt Date: 20240904
  Transmission Date: 20241017
  Serious: Yes (Death, Life-Threatening, Hospitalization, Disabling, Congenital Anomaly, Other)
  Sender: Haleon PLC
  Company Number: CA-GLAXOSMITHKLINE-CA2021AMR013307

PATIENT
  Age: 80 Year
  Sex: Male
  Weight: 69 kg

DRUGS (569)
  1. FLONASE ALLERGY RELIEF [Suspect]
     Active Substance: FLUTICASONE PROPIONATE
     Indication: Nutritional supplementation
     Dosage: 500 MG, PRN
     Route: 065
  2. FLONASE ALLERGY RELIEF [Suspect]
     Active Substance: FLUTICASONE PROPIONATE
     Indication: Intentional product misuse
     Route: 065
  3. FLONASE ALLERGY RELIEF [Suspect]
     Active Substance: FLUTICASONE PROPIONATE
     Indication: Blood phosphorus increased
  4. FLONASE ALLERGY RELIEF [Suspect]
     Active Substance: FLUTICASONE PROPIONATE
     Indication: Off label use
  5. CALTRATE [Suspect]
     Active Substance: CALCIUM CARBONATE
     Indication: Product used for unknown indication
     Route: 065
  6. CALTRATE [Suspect]
     Active Substance: CALCIUM CARBONATE
     Indication: Intentional product misuse
  7. SODIUM BICARBONATE [Suspect]
     Active Substance: SODIUM BICARBONATE
     Indication: Nutritional supplementation
     Route: 065
  8. UMECLIDINIUM BROMIDE [Suspect]
     Active Substance: UMECLIDINIUM BROMIDE
     Indication: Dyspnoea
     Dosage: 1 IU, QID
     Route: 065
  9. UMECLIDINIUM BROMIDE [Suspect]
     Active Substance: UMECLIDINIUM BROMIDE
     Dosage: UNK UNK, QD
     Route: 048
  10. UMECLIDINIUM BROMIDE [Suspect]
     Active Substance: UMECLIDINIUM BROMIDE
     Dosage: UNK
     Route: 048
  11. UMECLIDINIUM BROMIDE [Suspect]
     Active Substance: UMECLIDINIUM BROMIDE
     Dosage: UNK
     Route: 058
  12. UMECLIDINIUM BROMIDE [Suspect]
     Active Substance: UMECLIDINIUM BROMIDE
     Dosage: 1 DF
     Route: 048
  13. UMECLIDINIUM BROMIDE [Suspect]
     Active Substance: UMECLIDINIUM BROMIDE
     Route: 065
  14. AMMONIUM CHLORIDE\CHLORPHENIRAMINE\SODIUM CITRATE [Suspect]
     Active Substance: AMMONIUM CHLORIDE\CHLORPHENIRAMINE\SODIUM CITRATE
     Indication: Thrombosis
     Dosage: 2.5 ML
     Route: 048
  15. AMMONIUM CHLORIDE\CHLORPHENIRAMINE\SODIUM CITRATE [Suspect]
     Active Substance: AMMONIUM CHLORIDE\CHLORPHENIRAMINE\SODIUM CITRATE
     Dosage: 2.5 ML, QD
     Route: 048
  16. AMMONIUM CHLORIDE\CHLORPHENIRAMINE\SODIUM CITRATE [Suspect]
     Active Substance: AMMONIUM CHLORIDE\CHLORPHENIRAMINE\SODIUM CITRATE
     Dosage: UNK
  17. CEFTRIAXONE SODIUM [Suspect]
     Active Substance: CEFTRIAXONE SODIUM
     Indication: Bacterial infection
     Dosage: 2 G, QD (1 EVERY 1 DAYS, INTRAVENOUS)
     Route: 042
  18. CEFTRIAXONE SODIUM [Suspect]
     Active Substance: CEFTRIAXONE SODIUM
     Dosage: 1500 MG
     Route: 065
  19. CEFTRIAXONE SODIUM [Suspect]
     Active Substance: CEFTRIAXONE SODIUM
     Route: 065
  20. HEPARIN SODIUM\SODIUM CHLORIDE [Suspect]
     Active Substance: HEPARIN SODIUM\SODIUM CHLORIDE
     Indication: Anticoagulant therapy
     Dosage: 50 ML (1 DAY AS REQUIRED)
     Route: 042
  21. HEPARIN SODIUM\SODIUM CHLORIDE [Suspect]
     Active Substance: HEPARIN SODIUM\SODIUM CHLORIDE
     Dosage: 250 MG
     Route: 042
  22. HEPARIN SODIUM\SODIUM CHLORIDE [Suspect]
     Active Substance: HEPARIN SODIUM\SODIUM CHLORIDE
     Dosage: 250 ML (AS REQUIRED)
     Route: 042
  23. LANTHANUM CARBONATE [Suspect]
     Active Substance: LANTHANUM CARBONATE
     Indication: Hyperphosphataemia
     Dosage: 30 MG, QD
     Route: 048
  24. LANTHANUM CARBONATE [Suspect]
     Active Substance: LANTHANUM CARBONATE
     Indication: Blood phosphorus increased
     Dosage: UNK UNK, QD
     Route: 048
  25. LANTHANUM CARBONATE [Suspect]
     Active Substance: LANTHANUM CARBONATE
     Indication: Off label use
     Dosage: 550 MG
     Route: 048
  26. LANTHANUM CARBONATE [Suspect]
     Active Substance: LANTHANUM CARBONATE
     Dosage: TIME INTERVAL: 0.33333333 DAYS: 500 UG, TID
     Route: 048
  27. LANTHANUM CARBONATE [Suspect]
     Active Substance: LANTHANUM CARBONATE
     Dosage: 550 MG, QD
     Route: 048
  28. LANTHANUM CARBONATE [Suspect]
     Active Substance: LANTHANUM CARBONATE
     Dosage: UNK
  29. LANTHANUM CARBONATE [Suspect]
     Active Substance: LANTHANUM CARBONATE
     Dosage: 500 MG, PRN
     Route: 054
  30. LANTHANUM CARBONATE [Suspect]
     Active Substance: LANTHANUM CARBONATE
     Dosage: 500 MG, PRN
     Route: 048
  31. LANTHANUM CARBONATE [Suspect]
     Active Substance: LANTHANUM CARBONATE
  32. LANTHANUM CARBONATE [Suspect]
     Active Substance: LANTHANUM CARBONATE
     Route: 065
  33. LANTHANUM CARBONATE [Suspect]
     Active Substance: LANTHANUM CARBONATE
  34. LANTHANUM CARBONATE [Suspect]
     Active Substance: LANTHANUM CARBONATE
  35. LANTHANUM CARBONATE [Suspect]
     Active Substance: LANTHANUM CARBONATE
     Route: 065
  36. LANTHANUM CARBONATE [Suspect]
     Active Substance: LANTHANUM CARBONATE
     Route: 048
  37. FOSRENOL [Suspect]
     Active Substance: LANTHANUM CARBONATE
     Indication: Off label use
     Dosage: 500 MG
     Route: 048
  38. FOSRENOL [Suspect]
     Active Substance: LANTHANUM CARBONATE
     Indication: Blood phosphorus increased
     Dosage: 500 ?G, QD
     Route: 065
  39. FOSRENOL [Suspect]
     Active Substance: LANTHANUM CARBONATE
     Indication: Hyperphosphataemia
     Dosage: 500 MG, QD, (AS REQUIRED)
     Route: 048
  40. FOSRENOL [Suspect]
     Active Substance: LANTHANUM CARBONATE
     Dosage: 550 MG, QD
     Route: 048
  41. FOSRENOL [Suspect]
     Active Substance: LANTHANUM CARBONATE
     Dosage: 500 ?G
     Route: 048
  42. FOSRENOL [Suspect]
     Active Substance: LANTHANUM CARBONATE
     Dosage: 500 ?G, QD
     Route: 048
  43. FOSRENOL [Suspect]
     Active Substance: LANTHANUM CARBONATE
  44. FOSRENOL [Suspect]
     Active Substance: LANTHANUM CARBONATE
     Route: 065
  45. HYDROMORPHONE HYDROCHLORIDE [Suspect]
     Active Substance: HYDROMORPHONE HYDROCHLORIDE
     Indication: Analgesic therapy
     Dosage: UNK
     Route: 058
  46. VASOPRESSIN [Suspect]
     Active Substance: VASOPRESSIN
     Indication: Drug therapy
     Dosage: 50 ML, QD (1 DOSE PER 1 D)
     Route: 042
  47. VASOPRESSIN [Suspect]
     Active Substance: VASOPRESSIN
     Dosage: 250 ML, QD (1 DOSE PER 1 D)
     Route: 042
  48. VASOPRESSIN [Suspect]
     Active Substance: VASOPRESSIN
     Dosage: UNK
     Route: 065
  49. VASOPRESSIN [Suspect]
     Active Substance: VASOPRESSIN
     Dosage: UNK
     Route: 017
  50. VASOPRESSIN [Suspect]
     Active Substance: VASOPRESSIN
     Dosage: 1 IU, QD
     Route: 065
  51. VASOPRESSIN [Suspect]
     Active Substance: VASOPRESSIN
     Dosage: UNK, PRN
     Route: 042
  52. VASOPRESSIN [Suspect]
     Active Substance: VASOPRESSIN
     Dosage: UNK, PRN
  53. VASOPRESSIN [Suspect]
     Active Substance: VASOPRESSIN
     Route: 065
  54. SODIUM FERRIC GLUCONATE COMPLEX [Suspect]
     Active Substance: SODIUM FERRIC GLUCONATE COMPLEX
     Indication: Iron deficiency
     Dosage: 133 ML
     Route: 054
  55. SODIUM FERRIC GLUCONATE COMPLEX [Suspect]
     Active Substance: SODIUM FERRIC GLUCONATE COMPLEX
     Dosage: 1.25 MG, WE
  56. SODIUM FERRIC GLUCONATE COMPLEX [Suspect]
     Active Substance: SODIUM FERRIC GLUCONATE COMPLEX
     Dosage: 125 MG (1 EVERY 4 WEEKS)
  57. SODIUM FERRIC GLUCONATE COMPLEX [Suspect]
     Active Substance: SODIUM FERRIC GLUCONATE COMPLEX
     Dosage: 1.25 MG, MONTHLY
  58. SODIUM FERRIC GLUCONATE COMPLEX [Suspect]
     Active Substance: SODIUM FERRIC GLUCONATE COMPLEX
     Dosage: 4.64 MG, Q4W
     Route: 054
  59. SODIUM FERRIC GLUCONATE COMPLEX [Suspect]
     Active Substance: SODIUM FERRIC GLUCONATE COMPLEX
     Dosage: 125 MG (1 EVERY 4 WEEKS)IN SUCROSE INJECTION
     Route: 042
  60. SODIUM FERRIC GLUCONATE COMPLEX [Suspect]
     Active Substance: SODIUM FERRIC GLUCONATE COMPLEX
     Dosage: 125 MG, QD
     Route: 042
  61. SODIUM FERRIC GLUCONATE COMPLEX [Suspect]
     Active Substance: SODIUM FERRIC GLUCONATE COMPLEX
     Dosage: UNK
     Route: 065
  62. SODIUM FERRIC GLUCONATE COMPLEX [Suspect]
     Active Substance: SODIUM FERRIC GLUCONATE COMPLEX
     Dosage: 125 MG, (Q4WEEKS IN SUCROSE INJECTION)
     Route: 042
  63. SODIUM FERRIC GLUCONATE COMPLEX [Suspect]
     Active Substance: SODIUM FERRIC GLUCONATE COMPLEX
     Dosage: 17.85 MG, WE
     Route: 042
  64. SODIUM FERRIC GLUCONATE COMPLEX [Suspect]
     Active Substance: SODIUM FERRIC GLUCONATE COMPLEX
     Dosage: 17.85 MG, QW
  65. SODIUM FERRIC GLUCONATE COMPLEX [Suspect]
     Active Substance: SODIUM FERRIC GLUCONATE COMPLEX
     Dosage: 4.64 MG, Q4W
     Route: 058
  66. SODIUM FERRIC GLUCONATE COMPLEX [Suspect]
     Active Substance: SODIUM FERRIC GLUCONATE COMPLEX
     Dosage: 17.85 MG
     Route: 042
  67. SODIUM FERRIC GLUCONATE COMPLEX [Suspect]
     Active Substance: SODIUM FERRIC GLUCONATE COMPLEX
     Dosage: 4.64 MG, MONTHLY
     Route: 065
  68. SODIUM FERRIC GLUCONATE COMPLEX [Suspect]
     Active Substance: SODIUM FERRIC GLUCONATE COMPLEX
     Dosage: 1.25 MG, QW
  69. SODIUM FERRIC GLUCONATE COMPLEX [Suspect]
     Active Substance: SODIUM FERRIC GLUCONATE COMPLEX
     Dosage: 125 MG (1 EVERY 1 MONTHS)
     Route: 042
  70. HEPARIN CALCIUM [Suspect]
     Active Substance: HEPARIN CALCIUM
     Indication: Anticoagulant therapy
     Route: 065
  71. DOBUTAMINE [Suspect]
     Active Substance: DOBUTAMINE HYDROCHLORIDE
     Indication: Off label use
     Dosage: UNK, 1 DOSE PER 1 D, INJECTION
     Route: 048
  72. DOBUTAMINE [Suspect]
     Active Substance: DOBUTAMINE HYDROCHLORIDE
     Indication: Cardiogenic shock
     Dosage: UNK, 1 DOSE PER 1 D, INJECTION
     Route: 042
  73. DOBUTAMINE [Suspect]
     Active Substance: DOBUTAMINE HYDROCHLORIDE
     Dosage: UNK
     Route: 065
     Dates: start: 20200602
  74. DOBUTAMINE [Suspect]
     Active Substance: DOBUTAMINE HYDROCHLORIDE
     Route: 065
  75. SODIUM PHOSPHATE [Suspect]
     Active Substance: SODIUM PHOSPHATE
     Indication: Constipation
     Dosage: UNK
     Route: 048
  76. SODIUM PHOSPHATE [Suspect]
     Active Substance: SODIUM PHOSPHATE
     Route: 065
  77. DEXTROSE [Suspect]
     Active Substance: DEXTROSE\DEXTROSE MONOHYDRATE
     Indication: Nutritional supplementation
     Dosage: 12.5 MG
     Route: 065
  78. DEXTROSE [Suspect]
     Active Substance: DEXTROSE\DEXTROSE MONOHYDRATE
     Indication: Off label use
     Dosage: 12.5 MG, PRN
     Route: 042
  79. DEXTROSE [Suspect]
     Active Substance: DEXTROSE\DEXTROSE MONOHYDRATE
     Indication: Intentional product misuse
     Dosage: 12.5 G, QD
     Route: 042
  80. DEXTROSE [Suspect]
     Active Substance: DEXTROSE\DEXTROSE MONOHYDRATE
     Route: 065
  81. INSULIN DEGLUDEC [Suspect]
     Active Substance: INSULIN DEGLUDEC
     Indication: Diabetes mellitus
     Dosage: UNK UNK, QD
     Route: 048
  82. INSULIN DEGLUDEC [Suspect]
     Active Substance: INSULIN DEGLUDEC
     Dosage: UNK, INJECTION
     Route: 042
  83. INSULIN DEGLUDEC [Suspect]
     Active Substance: INSULIN DEGLUDEC
     Dosage: UNK, INJECTION
     Route: 058
  84. INSULIN DEGLUDEC [Suspect]
     Active Substance: INSULIN DEGLUDEC
     Dosage: UNK UNK, QID
     Route: 048
  85. INSULIN DEGLUDEC [Suspect]
     Active Substance: INSULIN DEGLUDEC
     Route: 065
  86. METRONIDAZOLE [Suspect]
     Active Substance: METRONIDAZOLE
     Indication: Bacterial infection
     Dosage: TIME INTERVAL: 0.33333333 DAYS: UNK UNK, TID
  87. METRONIDAZOLE [Suspect]
     Active Substance: METRONIDAZOLE
     Indication: Intentional product misuse
     Dosage: 500 ?G, QD
     Route: 048
  88. METRONIDAZOLE [Suspect]
     Active Substance: METRONIDAZOLE
     Indication: Off label use
     Dosage: 500 MG, QD
     Route: 048
  89. METRONIDAZOLE [Suspect]
     Active Substance: METRONIDAZOLE
     Dosage: TIME INTERVAL: 0.33333333 DAYS: 500 MG, TID (Q8H)
     Route: 048
  90. METRONIDAZOLE [Suspect]
     Active Substance: METRONIDAZOLE
     Dosage: TIME INTERVAL: 0.33333333 DAYS: 1500 MG, TID
     Route: 048
  91. METRONIDAZOLE [Suspect]
     Active Substance: METRONIDAZOLE
     Dosage: 500 MG, QD
     Route: 048
  92. METRONIDAZOLE [Suspect]
     Active Substance: METRONIDAZOLE
     Dosage: TIME INTERVAL: 0.33333333 DAYS: 500 MG, TID
     Route: 048
  93. METRONIDAZOLE [Suspect]
     Active Substance: METRONIDAZOLE
     Dosage: TIME INTERVAL: 0.33333333 DAYS: 500 MG, TID (Q8H)
     Route: 048
  94. METRONIDAZOLE [Suspect]
     Active Substance: METRONIDAZOLE
     Dosage: TIME INTERVAL: 0.33333333 DAYS: 500 ?G, TID (1 EVERY 8 HOUR)
     Route: 048
  95. METRONIDAZOLE [Suspect]
     Active Substance: METRONIDAZOLE
     Dosage: 500 MG
  96. METRONIDAZOLE [Suspect]
     Active Substance: METRONIDAZOLE
     Dosage: 1500 MG, QD
     Route: 048
  97. METRONIDAZOLE [Suspect]
     Active Substance: METRONIDAZOLE
     Dosage: 1500 ?G, QD
     Route: 048
  98. METRONIDAZOLE [Suspect]
     Active Substance: METRONIDAZOLE
     Dosage: 1500 MG, QD
     Route: 048
  99. METRONIDAZOLE [Suspect]
     Active Substance: METRONIDAZOLE
     Dosage: UNK, Q 3HR
  100. METRONIDAZOLE [Suspect]
     Active Substance: METRONIDAZOLE
  101. METRONIDAZOLE [Suspect]
     Active Substance: METRONIDAZOLE
  102. METRONIDAZOLE [Suspect]
     Active Substance: METRONIDAZOLE
     Route: 065
  103. METRONIDAZOLE [Suspect]
     Active Substance: METRONIDAZOLE
     Route: 065
  104. METRONIDAZOLE [Suspect]
     Active Substance: METRONIDAZOLE
     Route: 065
  105. POTASSIUM CHLORATE [Suspect]
     Active Substance: POTASSIUM CHLORATE
     Indication: Constipation
     Dosage: 17 MG, QD
     Route: 048
  106. POTASSIUM CHLORATE [Suspect]
     Active Substance: POTASSIUM CHLORATE
     Dosage: UNK
     Route: 065
  107. ARANESP [Suspect]
     Active Substance: DARBEPOETIN ALFA
     Indication: Anaemia
     Dosage: 1.42 UG
     Route: 042
  108. ARANESP [Suspect]
     Active Substance: DARBEPOETIN ALFA
     Dosage: 0.2 UG, WE (1 EVERY 1 WEEKS IV)
     Route: 065
  109. ARANESP [Suspect]
     Active Substance: DARBEPOETIN ALFA
     Dosage: 10 UG, CYC (CYCLICAL)
     Route: 042
  110. ARANESP [Suspect]
     Active Substance: DARBEPOETIN ALFA
     Dosage: 10 MG
     Route: 042
  111. ARANESP [Suspect]
     Active Substance: DARBEPOETIN ALFA
     Dosage: 10 MG, CYC (CYCLICAL)
     Route: 042
  112. ARANESP [Suspect]
     Active Substance: DARBEPOETIN ALFA
     Dosage: 0.71 UG, 1 DOSE PER 2 W, 0.714 UG, QOW (SOLUTION INTRAVENOUS)
     Route: 042
  113. ARANESP [Suspect]
     Active Substance: DARBEPOETIN ALFA
     Dosage: 10 MG, Q2WEEKS
     Route: 042
  114. ARANESP [Suspect]
     Active Substance: DARBEPOETIN ALFA
     Dosage: 1.42 UG, WE (1 EVERY 1 WEEKS)
     Route: 042
  115. ARANESP [Suspect]
     Active Substance: DARBEPOETIN ALFA
     Dosage: 10 MG, WE
     Route: 042
  116. ARANESP [Suspect]
     Active Substance: DARBEPOETIN ALFA
     Dosage: 0.2 UG, WE
     Route: 042
  117. ARANESP [Suspect]
     Active Substance: DARBEPOETIN ALFA
     Dosage: 20 MG, WE
     Route: 042
  118. ARANESP [Suspect]
     Active Substance: DARBEPOETIN ALFA
     Dosage: UNK
  119. ARANESP [Suspect]
     Active Substance: DARBEPOETIN ALFA
     Dosage: UNK
     Route: 017
  120. ARANESP [Suspect]
     Active Substance: DARBEPOETIN ALFA
     Dosage: 0.71 UG, WE
     Route: 042
  121. ARANESP [Suspect]
     Active Substance: DARBEPOETIN ALFA
     Dosage: 0.71 UG, QD (INTRAVENOUS)
     Route: 042
  122. ARANESP [Suspect]
     Active Substance: DARBEPOETIN ALFA
     Dosage: 20 MG, WE (10 MG 2 EVERY 1 WEEKS INTRAVENOUS)
     Route: 042
  123. ARANESP [Suspect]
     Active Substance: DARBEPOETIN ALFA
     Route: 065
  124. HERBALS [Suspect]
     Active Substance: HERBALS
     Indication: Nutritional supplementation
     Dosage: 12.5 G, AS NECESSARY
     Route: 065
  125. HERBALS [Suspect]
     Active Substance: HERBALS
     Dosage: 12.5 G, AS NECESSARY
     Route: 065
  126. INSULIN ASPART [Suspect]
     Active Substance: INSULIN ASPART
     Indication: Diabetes mellitus
     Dosage: UNK
     Route: 058
  127. INSULIN ASPART [Suspect]
     Active Substance: INSULIN ASPART
     Dosage: UNK
     Route: 042
  128. INSULIN ASPART [Suspect]
     Active Substance: INSULIN ASPART
     Route: 065
  129. LUTEIN [Suspect]
     Active Substance: LUTEIN
     Indication: Nutritional supplementation
     Dosage: 12.5 G, AS REQUIRED
     Route: 042
  130. LUTEIN [Suspect]
     Active Substance: LUTEIN
     Route: 065
  131. BETAMETHASONE [Suspect]
     Active Substance: BETAMETHASONE
     Indication: Off label use
     Dosage: UNK
  132. BETAMETHASONE [Suspect]
     Active Substance: BETAMETHASONE
     Indication: Swelling
     Dosage: UNK UNK, QD
     Route: 061
  133. BETAMETHASONE [Suspect]
     Active Substance: BETAMETHASONE
     Dosage: 10 MG, QD (1 EVERY 1 DAYS TOPICAL)
     Route: 061
  134. BETAMETHASONE [Suspect]
     Active Substance: BETAMETHASONE
     Dosage: 10 DF
  135. BETAMETHASONE [Suspect]
     Active Substance: BETAMETHASONE
     Dosage: UNK, PRN
     Route: 065
  136. BETAMETHASONE [Suspect]
     Active Substance: BETAMETHASONE
     Dosage: 1 DF
     Route: 065
  137. BETAMETHASONE [Suspect]
     Active Substance: BETAMETHASONE
     Dosage: 1 DF, PRN
  138. BETAMETHASONE [Suspect]
     Active Substance: BETAMETHASONE
     Dosage: UNK, PRN
     Route: 061
  139. BETAMETHASONE [Suspect]
     Active Substance: BETAMETHASONE
     Route: 065
  140. SALMETEROL XINAFOATE [Suspect]
     Active Substance: SALMETEROL XINAFOATE
     Indication: Product used for unknown indication
     Dosage: UNK
  141. ALBUTEROL SULFATE [Suspect]
     Active Substance: ALBUTEROL SULFATE
     Indication: Off label use
     Dosage: UNK (1 EVERY 5 HOURS)
     Route: 055
  142. ALBUTEROL SULFATE [Suspect]
     Active Substance: ALBUTEROL SULFATE
     Indication: Intentional product misuse
     Dosage: 1 DF, QID
     Route: 055
  143. ALBUTEROL SULFATE [Suspect]
     Active Substance: ALBUTEROL SULFATE
     Indication: Chronic obstructive pulmonary disease
     Dosage: 1 DF, QID
     Route: 055
  144. ALBUTEROL SULFATE [Suspect]
     Active Substance: ALBUTEROL SULFATE
     Dosage: UNK UNK, QD
     Route: 050
  145. ALBUTEROL SULFATE [Suspect]
     Active Substance: ALBUTEROL SULFATE
     Dosage: UNK UNK, QD
     Route: 055
  146. ALBUTEROL SULFATE [Suspect]
     Active Substance: ALBUTEROL SULFATE
     Dosage: 1 DF
     Route: 065
  147. ALBUTEROL SULFATE [Suspect]
     Active Substance: ALBUTEROL SULFATE
     Dosage: UNK UNK, QID
     Route: 048
  148. ALBUTEROL SULFATE [Suspect]
     Active Substance: ALBUTEROL SULFATE
     Dosage: UNK UNK, QID
     Route: 065
  149. ALBUTEROL SULFATE [Suspect]
     Active Substance: ALBUTEROL SULFATE
     Dosage: UNK UNK, QID
     Route: 050
  150. ALBUTEROL SULFATE [Suspect]
     Active Substance: ALBUTEROL SULFATE
     Dosage: UNK
     Route: 065
  151. ALBUTEROL SULFATE [Suspect]
     Active Substance: ALBUTEROL SULFATE
     Dosage: UNK, Q6HR
     Route: 065
  152. ALBUTEROL SULFATE [Suspect]
     Active Substance: ALBUTEROL SULFATE
     Dosage: 1 DF
     Route: 050
  153. ALBUTEROL SULFATE [Suspect]
     Active Substance: ALBUTEROL SULFATE
     Dosage: 4 DF, QD
     Route: 065
  154. ALBUTEROL SULFATE [Suspect]
     Active Substance: ALBUTEROL SULFATE
     Dosage: UNK, 4 EVERY 1 DAY
  155. ALBUTEROL SULFATE [Suspect]
     Active Substance: ALBUTEROL SULFATE
     Dosage: 1 DF, QID
     Route: 065
  156. ALBUTEROL SULFATE [Suspect]
     Active Substance: ALBUTEROL SULFATE
     Dosage: 1 DF
     Route: 055
  157. ALBUTEROL SULFATE [Suspect]
     Active Substance: ALBUTEROL SULFATE
     Dosage: 4 DF, QID
     Route: 055
  158. ALBUTEROL SULFATE [Suspect]
     Active Substance: ALBUTEROL SULFATE
     Dosage: 4 DF, QD
     Route: 055
  159. ALBUTEROL SULFATE [Suspect]
     Active Substance: ALBUTEROL SULFATE
     Dosage: 4 DF, QID
     Route: 065
  160. ALBUTEROL SULFATE [Suspect]
     Active Substance: ALBUTEROL SULFATE
     Dosage: 1 DF, QID
     Route: 050
  161. ALBUTEROL SULFATE [Suspect]
     Active Substance: ALBUTEROL SULFATE
     Dosage: UNK UNK, QID (EVERY 6 HOURS)
     Route: 055
  162. ALBUTEROL SULFATE [Suspect]
     Active Substance: ALBUTEROL SULFATE
     Dosage: UNK, QID (PER 6 HOURS)
     Route: 050
  163. LUTEIN [Suspect]
     Active Substance: LUTEIN
     Indication: Off label use
     Dosage: UNK (DOSE 12.5)
     Route: 042
  164. LUTEIN [Suspect]
     Active Substance: LUTEIN
     Indication: Nutritional supplementation
     Dosage: 5 MG, QD
     Route: 042
  165. LUTEIN [Suspect]
     Active Substance: LUTEIN
     Indication: Intentional product misuse
     Dosage: 12.5 G, PRN
     Route: 042
  166. SODIUM FERRIC GLUCONATE COMPLEX [Suspect]
     Active Substance: SODIUM FERRIC GLUCONATE COMPLEX
     Indication: Iron deficiency
     Dosage: 125 MG, Q4W
     Route: 042
  167. SODIUM FERRIC GLUCONATE COMPLEX [Suspect]
     Active Substance: SODIUM FERRIC GLUCONATE COMPLEX
     Dosage: 4.64 MG, Q4W
     Route: 058
  168. SODIUM FERRIC GLUCONATE COMPLEX [Suspect]
     Active Substance: SODIUM FERRIC GLUCONATE COMPLEX
     Dosage: 4.64 MG, Q4W
     Route: 054
  169. CEFTRIAXONE [Suspect]
     Active Substance: CEFTRIAXONE\CEFTRIAXONE SODIUM
     Indication: Bacterial infection
     Dosage: 2 G, QD, POWDER
     Route: 042
  170. CEFTRIAXONE [Suspect]
     Active Substance: CEFTRIAXONE\CEFTRIAXONE SODIUM
     Dosage: 2 G, QD
     Route: 054
  171. CEFTRIAXONE [Suspect]
     Active Substance: CEFTRIAXONE\CEFTRIAXONE SODIUM
     Dosage: 2 G, QD
     Route: 048
  172. PHYTONADIONE [Suspect]
     Active Substance: PHYTONADIONE
     Indication: Off label use
     Dosage: 5 MG, PRN
     Route: 042
  173. PHYTONADIONE [Suspect]
     Active Substance: PHYTONADIONE
     Indication: Vitamin supplementation
     Dosage: 5 MG
     Route: 017
  174. PHYTONADIONE [Suspect]
     Active Substance: PHYTONADIONE
     Dosage: 5 MG
     Route: 042
  175. PHYTONADIONE [Suspect]
     Active Substance: PHYTONADIONE
     Dosage: 5 MG
     Route: 017
  176. PHYTONADIONE [Suspect]
     Active Substance: PHYTONADIONE
     Dosage: UNK
     Route: 042
  177. PHYTONADIONE [Suspect]
     Active Substance: PHYTONADIONE
     Dosage: 5 MG
     Route: 042
  178. PHYTONADIONE [Suspect]
     Active Substance: PHYTONADIONE
     Dosage: 5 MG, QD
     Route: 042
     Dates: start: 20200602, end: 20200602
  179. PHYTONADIONE [Suspect]
     Active Substance: PHYTONADIONE
     Route: 065
  180. PHYTONADIONE [Suspect]
     Active Substance: PHYTONADIONE
  181. MAGNESIUM OXIDE [Suspect]
     Active Substance: MAGNESIUM OXIDE
     Indication: Constipation
     Dosage: 133 ML, PRN
     Route: 065
  182. LANSOPRAZOLE [Suspect]
     Active Substance: LANSOPRAZOLE
     Indication: Antacid therapy
     Dosage: UNK UNK, QD
     Route: 048
  183. LANSOPRAZOLE [Suspect]
     Active Substance: LANSOPRAZOLE
     Indication: Off label use
     Dosage: 30 MG
     Route: 065
  184. LANSOPRAZOLE [Suspect]
     Active Substance: LANSOPRAZOLE
     Indication: Intentional product misuse
     Dosage: 30 MG, QD
     Route: 048
  185. LANSOPRAZOLE [Suspect]
     Active Substance: LANSOPRAZOLE
     Route: 065
  186. LANSOPRAZOLE [Suspect]
     Active Substance: LANSOPRAZOLE
  187. LANSOPRAZOLE [Suspect]
     Active Substance: LANSOPRAZOLE
     Dosage: CAPSULE, DELAYED RELEASE
  188. LANSOPRAZOLE [Suspect]
     Active Substance: LANSOPRAZOLE
     Route: 042
  189. LANSOPRAZOLE [Suspect]
     Active Substance: LANSOPRAZOLE
     Route: 065
  190. LYPRESSIN [Suspect]
     Active Substance: LYPRESSIN
     Indication: Drug therapy
     Dosage: UNK
     Route: 065
  191. DEXTROSE [Suspect]
     Active Substance: DEXTROSE\DEXTROSE MONOHYDRATE
     Indication: Intentional product misuse
     Dosage: UNK
  192. DEXTROSE [Suspect]
     Active Substance: DEXTROSE\DEXTROSE MONOHYDRATE
     Indication: Off label use
     Dosage: 12.5 MG, PRN
     Route: 042
  193. DEXTROSE [Suspect]
     Active Substance: DEXTROSE\DEXTROSE MONOHYDRATE
     Indication: Nutritional supplementation
     Dosage: 250 ML, QD
     Route: 042
  194. DEXTROSE [Suspect]
     Active Substance: DEXTROSE\DEXTROSE MONOHYDRATE
     Dosage: 12.5 MG
     Route: 042
  195. DEXTROSE [Suspect]
     Active Substance: DEXTROSE\DEXTROSE MONOHYDRATE
     Dosage: 12.5 G, QD
     Route: 065
  196. DEXTROSE [Suspect]
     Active Substance: DEXTROSE\DEXTROSE MONOHYDRATE
     Dosage: 12.5 G, PRN
     Route: 042
  197. DEXTROSE [Suspect]
     Active Substance: DEXTROSE\DEXTROSE MONOHYDRATE
     Dosage: 12.5 MG, QD
     Route: 042
  198. DEXTROSE [Suspect]
     Active Substance: DEXTROSE\DEXTROSE MONOHYDRATE
     Dosage: 1 DF, QD
  199. DEXTROSE [Suspect]
     Active Substance: DEXTROSE\DEXTROSE MONOHYDRATE
     Dosage: 12 G, QD
     Route: 042
  200. DEXTROSE [Suspect]
     Active Substance: DEXTROSE\DEXTROSE MONOHYDRATE
     Dosage: 12.5 G, PRN
     Route: 054
  201. DEXTROSE [Suspect]
     Active Substance: DEXTROSE\DEXTROSE MONOHYDRATE
     Dosage: 50 ML, QD
     Route: 042
  202. DEXTROSE [Suspect]
     Active Substance: DEXTROSE\DEXTROSE MONOHYDRATE
     Dosage: 12.5 MG
     Route: 065
  203. DEXTROSE [Suspect]
     Active Substance: DEXTROSE\DEXTROSE MONOHYDRATE
     Dosage: 12.5 G, PRN
     Route: 042
  204. DEXTROSE [Suspect]
     Active Substance: DEXTROSE\DEXTROSE MONOHYDRATE
  205. CALCIUM CARBONATE\CHOLECALCIFEROL [Suspect]
     Active Substance: CALCIUM CARBONATE\CHOLECALCIFEROL
     Indication: Product used for unknown indication
     Dosage: UNK
  206. FURAZOLIDONE [Suspect]
     Active Substance: FURAZOLIDONE
     Indication: Product used for unknown indication
     Dosage: 12.5 MG
  207. FURAZOLIDONE [Suspect]
     Active Substance: FURAZOLIDONE
     Route: 065
  208. FRAGMIN [Suspect]
     Active Substance: DALTEPARIN SODIUM
     Indication: Pulmonary embolism
     Dosage: UNK
     Route: 065
  209. FRAGMIN [Suspect]
     Active Substance: DALTEPARIN SODIUM
     Indication: Thrombosis
     Dosage: 2.5 ML
     Route: 065
  210. FRAGMIN [Suspect]
     Active Substance: DALTEPARIN SODIUM
     Dosage: UNK, SOLUTION INTRAVENOUS
     Route: 042
  211. FRAGMIN [Suspect]
     Active Substance: DALTEPARIN SODIUM
     Dosage: 2.5 ML
     Route: 065
  212. FRAGMIN [Suspect]
     Active Substance: DALTEPARIN SODIUM
     Dosage: 12.5 MG
  213. FRAGMIN [Suspect]
     Active Substance: DALTEPARIN SODIUM
     Dosage: UNK
     Route: 048
  214. IPRATROPIUM BROMIDE [Suspect]
     Active Substance: IPRATROPIUM BROMIDE\IPRATROPIUM BROMIDE ANHYDROUS
     Indication: Dyspnoea
     Dosage: 4 DF, QD (4 EVERY 1 DAY)
  215. IPRATROPIUM BROMIDE [Suspect]
     Active Substance: IPRATROPIUM BROMIDE\IPRATROPIUM BROMIDE ANHYDROUS
     Indication: Intentional product misuse
     Dosage: UNK UNK, QD
     Route: 065
  216. IPRATROPIUM BROMIDE [Suspect]
     Active Substance: IPRATROPIUM BROMIDE\IPRATROPIUM BROMIDE ANHYDROUS
     Indication: Off label use
     Dosage: 4 DF, QD
     Route: 058
  217. IPRATROPIUM BROMIDE [Suspect]
     Active Substance: IPRATROPIUM BROMIDE\IPRATROPIUM BROMIDE ANHYDROUS
     Indication: Sleep disorder therapy
     Dosage: UNK UNK, QD
     Route: 050
  218. IPRATROPIUM BROMIDE [Suspect]
     Active Substance: IPRATROPIUM BROMIDE\IPRATROPIUM BROMIDE ANHYDROUS
     Dosage: UNK
     Route: 050
  219. IPRATROPIUM BROMIDE [Suspect]
     Active Substance: IPRATROPIUM BROMIDE\IPRATROPIUM BROMIDE ANHYDROUS
     Dosage: 4 DF, QD
     Route: 048
  220. IPRATROPIUM BROMIDE [Suspect]
     Active Substance: IPRATROPIUM BROMIDE\IPRATROPIUM BROMIDE ANHYDROUS
     Dosage: TIME INTERVAL: 0.33333333 DAYS: 1 DF, TID (1 EVERY 8HR)
     Route: 065
  221. IPRATROPIUM BROMIDE [Suspect]
     Active Substance: IPRATROPIUM BROMIDE\IPRATROPIUM BROMIDE ANHYDROUS
     Dosage: UNK UNK, QID
     Route: 050
  222. IPRATROPIUM BROMIDE [Suspect]
     Active Substance: IPRATROPIUM BROMIDE\IPRATROPIUM BROMIDE ANHYDROUS
     Dosage: UNK
     Route: 065
  223. IPRATROPIUM BROMIDE [Suspect]
     Active Substance: IPRATROPIUM BROMIDE\IPRATROPIUM BROMIDE ANHYDROUS
     Dosage: UNK UNK, QID
     Route: 065
  224. IPRATROPIUM BROMIDE [Suspect]
     Active Substance: IPRATROPIUM BROMIDE\IPRATROPIUM BROMIDE ANHYDROUS
     Dosage: 1 DF, QID (Q6HR)
     Route: 050
  225. IPRATROPIUM BROMIDE [Suspect]
     Active Substance: IPRATROPIUM BROMIDE\IPRATROPIUM BROMIDE ANHYDROUS
     Dosage: 1 DF
     Route: 055
  226. IPRATROPIUM BROMIDE [Suspect]
     Active Substance: IPRATROPIUM BROMIDE\IPRATROPIUM BROMIDE ANHYDROUS
     Dosage: UNK UNK, QD
     Route: 055
  227. IPRATROPIUM BROMIDE [Suspect]
     Active Substance: IPRATROPIUM BROMIDE\IPRATROPIUM BROMIDE ANHYDROUS
     Dosage: UNK
     Route: 045
  228. IPRATROPIUM BROMIDE [Suspect]
     Active Substance: IPRATROPIUM BROMIDE\IPRATROPIUM BROMIDE ANHYDROUS
     Dosage: TIME INTERVAL: 0.33333333 DAYS: 1 DF, TID (1 EVERY 8HR)
     Route: 050
  229. IPRATROPIUM BROMIDE [Suspect]
     Active Substance: IPRATROPIUM BROMIDE\IPRATROPIUM BROMIDE ANHYDROUS
     Dosage: 1 DF, QID (1 DF, Q6H)
     Route: 065
  230. IPRATROPIUM BROMIDE [Suspect]
     Active Substance: IPRATROPIUM BROMIDE\IPRATROPIUM BROMIDE ANHYDROUS
     Dosage: UNK UNK, QID (Q6HR)
     Route: 055
  231. IPRATROPIUM BROMIDE [Suspect]
     Active Substance: IPRATROPIUM BROMIDE\IPRATROPIUM BROMIDE ANHYDROUS
     Dosage: UNK UNK, QD
     Route: 050
  232. IPRATROPIUM BROMIDE [Suspect]
     Active Substance: IPRATROPIUM BROMIDE\IPRATROPIUM BROMIDE ANHYDROUS
     Dosage: 4 DF, QD
     Route: 055
  233. IPRATROPIUM BROMIDE [Suspect]
     Active Substance: IPRATROPIUM BROMIDE\IPRATROPIUM BROMIDE ANHYDROUS
     Dosage: 1 DF, QID (1 EVERY 6HR)
     Route: 065
  234. IPRATROPIUM BROMIDE [Suspect]
     Active Substance: IPRATROPIUM BROMIDE\IPRATROPIUM BROMIDE ANHYDROUS
     Dosage: 1 DF, QD
     Route: 065
  235. IPRATROPIUM BROMIDE [Suspect]
     Active Substance: IPRATROPIUM BROMIDE\IPRATROPIUM BROMIDE ANHYDROUS
     Dosage: 1 DF, QID (Q6HR)
     Route: 055
  236. IPRATROPIUM BROMIDE [Suspect]
     Active Substance: IPRATROPIUM BROMIDE\IPRATROPIUM BROMIDE ANHYDROUS
     Dosage: UNK UNK, QD
     Route: 055
  237. AMIODARONE [Suspect]
     Active Substance: AMIODARONE
     Indication: Drug therapy
     Dosage: UNK
     Route: 065
  238. AMIODARONE [Suspect]
     Active Substance: AMIODARONE
     Indication: Intentional product misuse
     Dosage: 150 MG, QD, LIQUID
     Route: 042
  239. AMIODARONE [Suspect]
     Active Substance: AMIODARONE
     Indication: Ventricular fibrillation
     Dosage: UNK UNK, QD
     Route: 042
  240. AMIODARONE [Suspect]
     Active Substance: AMIODARONE
     Indication: Off label use
     Dosage: 150 MG, QD, LIQUID
     Route: 042
  241. AMIODARONE [Suspect]
     Active Substance: AMIODARONE
     Dosage: 27.78 MG, INTRAVENOUS, LIQUID
     Route: 042
  242. AMIODARONE [Suspect]
     Active Substance: AMIODARONE
     Dosage: 1 DF, QD
     Route: 042
  243. AMIODARONE [Suspect]
     Active Substance: AMIODARONE
     Route: 065
  244. VITAMIN K1 [Suspect]
     Active Substance: PHYTONADIONE
     Indication: Off label use
     Dosage: UNK
  245. VITAMIN K1 [Suspect]
     Active Substance: PHYTONADIONE
     Indication: Vitamin supplementation
     Dosage: 5 MG
     Route: 042
  246. VITAMIN K1 [Suspect]
     Active Substance: PHYTONADIONE
     Dosage: 5 MG, QD
     Route: 017
  247. VITAMIN K1 [Suspect]
     Active Substance: PHYTONADIONE
     Route: 042
  248. ARANESP [Suspect]
     Active Substance: DARBEPOETIN ALFA
     Indication: Anaemia
     Dosage: 0.75 MG
  249. ARANESP [Suspect]
     Active Substance: DARBEPOETIN ALFA
     Dosage: 20 ML, WE
     Route: 065
  250. FENOTEROL\IPRATROPIUM [Suspect]
     Active Substance: FENOTEROL\IPRATROPIUM
     Indication: Dyspnoea
     Dosage: UNK UNK, QD
     Route: 065
  251. FENOTEROL\IPRATROPIUM [Suspect]
     Active Substance: FENOTEROL\IPRATROPIUM
     Dosage: UNK UNK, QD
     Route: 065
  252. FENOTEROL\IPRATROPIUM [Suspect]
     Active Substance: FENOTEROL\IPRATROPIUM
     Dosage: 1 DF, QD
     Route: 065
  253. FENOTEROL\IPRATROPIUM [Suspect]
     Active Substance: FENOTEROL\IPRATROPIUM
     Dosage: TIME INTERVAL: 0.33333333 DAYS: 1 DF, TID
  254. FENOTEROL\IPRATROPIUM [Suspect]
     Active Substance: FENOTEROL\IPRATROPIUM
     Dosage: 4 IU, QD
     Route: 065
  255. FENOTEROL\IPRATROPIUM [Suspect]
     Active Substance: FENOTEROL\IPRATROPIUM
     Dosage: UNK
     Route: 065
  256. HEPARIN SODIUM [Suspect]
     Active Substance: HEPARIN SODIUM
     Indication: Off label use
     Dosage: 250 ML
     Route: 042
  257. HEPARIN SODIUM [Suspect]
     Active Substance: HEPARIN SODIUM
     Indication: Anticoagulant therapy
     Dosage: 50 ML
     Route: 017
  258. HEPARIN SODIUM [Suspect]
     Active Substance: HEPARIN SODIUM
     Indication: Intentional product misuse
     Dosage: UNK
     Route: 017
  259. HEPARIN SODIUM [Suspect]
     Active Substance: HEPARIN SODIUM
     Dosage: 250 ML
     Route: 042
  260. HEPARIN SODIUM [Suspect]
     Active Substance: HEPARIN SODIUM
     Dosage: 50 ML, PRN
     Route: 048
  261. HEPARIN SODIUM [Suspect]
     Active Substance: HEPARIN SODIUM
     Dosage: 50 ML, PRN
     Route: 042
  262. HEPARIN SODIUM [Suspect]
     Active Substance: HEPARIN SODIUM
     Dosage: 50 ML, QD
     Route: 065
     Dates: start: 20200602, end: 20200602
  263. HEPARIN SODIUM [Suspect]
     Active Substance: HEPARIN SODIUM
     Route: 065
  264. DULCOLAX (BISACODYL) [Suspect]
     Active Substance: BISACODYL
     Indication: Constipation
     Dosage: 10 MG, PRN
     Route: 065
  265. DULCOLAX (BISACODYL) [Suspect]
     Active Substance: BISACODYL
     Indication: Off label use
     Dosage: 10 MG
     Route: 042
  266. DULCOLAX (BISACODYL) [Suspect]
     Active Substance: BISACODYL
     Indication: Ventricular fibrillation
     Dosage: UNK
  267. DULCOLAX (BISACODYL) [Suspect]
     Active Substance: BISACODYL
     Indication: Intentional product misuse
     Dosage: 10 MG, PRN
     Route: 042
  268. DULCOLAX (BISACODYL) [Suspect]
     Active Substance: BISACODYL
     Indication: Drug therapy
     Dosage: 10 MG, QD
     Route: 054
  269. DULCOLAX (BISACODYL) [Suspect]
     Active Substance: BISACODYL
     Dosage: 10 MG, QD (1 EVERY 1 DAYS)
     Route: 054
  270. DULCOLAX (BISACODYL) [Suspect]
     Active Substance: BISACODYL
     Dosage: 10 MG
     Route: 065
  271. DULCOLAX (BISACODYL) [Suspect]
     Active Substance: BISACODYL
     Route: 065
  272. CHLORPHENIRAMINE MALEATE [Suspect]
     Active Substance: CHLORPHENIRAMINE MALEATE
     Indication: Thrombosis
     Dosage: UNK
     Route: 065
  273. LIDOCAINE [Suspect]
     Active Substance: LIDOCAINE
     Indication: Constipation
     Dosage: 133 ML
     Route: 058
  274. .BETA.-CAROTENE [Suspect]
     Active Substance: .BETA.-CAROTENE
     Indication: Nutritional supplementation
     Dosage: 12.5 G, PRN
     Route: 042
  275. HYDROMORPHONE HYDROCHLORIDE [Suspect]
     Active Substance: HYDROMORPHONE HYDROCHLORIDE
     Indication: Intentional product misuse
     Dosage: 4 MG
     Route: 058
  276. HYDROMORPHONE HYDROCHLORIDE [Suspect]
     Active Substance: HYDROMORPHONE HYDROCHLORIDE
     Indication: Analgesic therapy
     Dosage: 6 MG, QID (40 MG, Q8H 6MG, QID)
     Route: 058
  277. HYDROMORPHONE HYDROCHLORIDE [Suspect]
     Active Substance: HYDROMORPHONE HYDROCHLORIDE
     Indication: Off label use
     Dosage: 1 MG, (1 EVERY 6 DAYS)
     Route: 058
  278. HYDROMORPHONE HYDROCHLORIDE [Suspect]
     Active Substance: HYDROMORPHONE HYDROCHLORIDE
     Dosage: 17 MG, QD
     Route: 065
  279. HYDROMORPHONE HYDROCHLORIDE [Suspect]
     Active Substance: HYDROMORPHONE HYDROCHLORIDE
     Dosage: TIME INTERVAL: 0.16666666 DAYS: 4 MG, 6D (Q4HR)
     Route: 058
  280. HYDROMORPHONE HYDROCHLORIDE [Suspect]
     Active Substance: HYDROMORPHONE HYDROCHLORIDE
     Dosage: 6 MG, Q5H
  281. HYDROMORPHONE HYDROCHLORIDE [Suspect]
     Active Substance: HYDROMORPHONE HYDROCHLORIDE
     Dosage: 24 MG, QID ( Q6HR)
     Route: 058
  282. HYDROMORPHONE HYDROCHLORIDE [Suspect]
     Active Substance: HYDROMORPHONE HYDROCHLORIDE
     Dosage: 6 MG, QID (0.38 HR, 6 MG, Q6HR)
     Route: 048
  283. HYDROMORPHONE HYDROCHLORIDE [Suspect]
     Active Substance: HYDROMORPHONE HYDROCHLORIDE
     Dosage: TIME INTERVAL: 0.16666666 DAYS: 1 MG, 6D
     Route: 058
  284. HYDROMORPHONE HYDROCHLORIDE [Suspect]
     Active Substance: HYDROMORPHONE HYDROCHLORIDE
     Dosage: 1 MG, QD
     Route: 058
  285. HYDROMORPHONE HYDROCHLORIDE [Suspect]
     Active Substance: HYDROMORPHONE HYDROCHLORIDE
     Dosage: TIME INTERVAL: 0.16666666 DAYS: 24 MG, 6D (Q4HR)
     Route: 058
  286. HYDROMORPHONE HYDROCHLORIDE [Suspect]
     Active Substance: HYDROMORPHONE HYDROCHLORIDE
     Dosage: 6 MG
     Route: 058
  287. HYDROMORPHONE HYDROCHLORIDE [Suspect]
     Active Substance: HYDROMORPHONE HYDROCHLORIDE
     Dosage: 1 MG, QID (1 EVERY 6 HR)
     Route: 058
  288. HYDROMORPHONE HYDROCHLORIDE [Suspect]
     Active Substance: HYDROMORPHONE HYDROCHLORIDE
     Dosage: 96 MG, QD
     Route: 058
  289. POLYETHYLENE GLYCOL 4000 [Suspect]
     Active Substance: POLYETHYLENE GLYCOL 4000
     Indication: Constipation
     Dosage: 17 MG, QD
     Route: 048
  290. POLYETHYLENE GLYCOL 4000 [Suspect]
     Active Substance: POLYETHYLENE GLYCOL 4000
     Dosage: 5 MG
  291. POLYETHYLENE GLYCOL 4000 [Suspect]
     Active Substance: POLYETHYLENE GLYCOL 4000
     Dosage: 17 MG
     Route: 048
  292. POLYETHYLENE GLYCOL 4000 [Suspect]
     Active Substance: POLYETHYLENE GLYCOL 4000
     Dosage: UNK
     Route: 048
  293. POLYETHYLENE GLYCOL 4000 [Suspect]
     Active Substance: POLYETHYLENE GLYCOL 4000
     Dosage: 2.5 ML, WE
     Route: 042
  294. POLYETHYLENE GLYCOL 4000 [Suspect]
     Active Substance: POLYETHYLENE GLYCOL 4000
     Dosage: 3 MG
     Route: 048
  295. POLYETHYLENE GLYCOL 4000 [Suspect]
     Active Substance: POLYETHYLENE GLYCOL 4000
     Dosage: UNK
     Route: 048
  296. POLYETHYLENE GLYCOL 4000 [Suspect]
     Active Substance: POLYETHYLENE GLYCOL 4000
     Dosage: 3 MG, WE (1/WEEK)
     Route: 048
  297. POLYETHYLENE GLYCOL 4000 [Suspect]
     Active Substance: POLYETHYLENE GLYCOL 4000
     Dosage: 2.5 ML
     Route: 065
  298. POLYETHYLENE GLYCOL 4000 [Suspect]
     Active Substance: POLYETHYLENE GLYCOL 4000
     Dosage: 3 G
  299. POLYETHYLENE GLYCOL 4000 [Suspect]
     Active Substance: POLYETHYLENE GLYCOL 4000
     Dosage: UNK
     Route: 055
  300. POLYETHYLENE GLYCOL 4000 [Suspect]
     Active Substance: POLYETHYLENE GLYCOL 4000
     Dosage: 1 DF, QID
     Route: 065
  301. POLYETHYLENE GLYCOL 4000 [Suspect]
     Active Substance: POLYETHYLENE GLYCOL 4000
     Dosage: 17 MG, QD
     Route: 048
  302. POLYETHYLENE GLYCOL 4000 [Suspect]
     Active Substance: POLYETHYLENE GLYCOL 4000
     Dosage: UNK, QD
     Route: 065
  303. POLYETHYLENE GLYCOL 4000 [Suspect]
     Active Substance: POLYETHYLENE GLYCOL 4000
     Dosage: 17 MG, WE
     Route: 048
  304. POLYETHYLENE GLYCOL 4000 [Suspect]
     Active Substance: POLYETHYLENE GLYCOL 4000
     Dosage: 3 MG, WE (1/WEEK)
     Route: 065
  305. POLYETHYLENE GLYCOL 4000 [Suspect]
     Active Substance: POLYETHYLENE GLYCOL 4000
     Dosage: 17 MG, QD
     Route: 065
  306. POLYETHYLENE GLYCOL 4000 [Suspect]
     Active Substance: POLYETHYLENE GLYCOL 4000
     Dosage: 17 G, QD
     Route: 048
  307. POLYETHYLENE GLYCOL 4000 [Suspect]
     Active Substance: POLYETHYLENE GLYCOL 4000
     Dosage: 12.5 G
     Route: 065
  308. POLYETHYLENE GLYCOL 4000 [Suspect]
     Active Substance: POLYETHYLENE GLYCOL 4000
     Dosage: 17 MG
     Route: 048
  309. POLYETHYLENE GLYCOL 4000 [Suspect]
     Active Substance: POLYETHYLENE GLYCOL 4000
     Dosage: UNK, QD
     Route: 048
  310. VITAMIN E [Suspect]
     Active Substance: .ALPHA.-TOCOPHEROL
     Indication: Nutritional supplementation
     Dosage: 5 G
     Route: 065
  311. VITAMIN E [Suspect]
     Active Substance: .ALPHA.-TOCOPHEROL
     Dosage: 12.5 G
     Route: 042
  312. VITAMIN E [Suspect]
     Active Substance: .ALPHA.-TOCOPHEROL
     Route: 065
  313. BIOTIN [Suspect]
     Active Substance: BIOTIN
     Indication: Vitamin supplementation
     Dosage: 17 MG, QD (1 DOSE PER 1 D)
     Route: 042
  314. BIOTIN [Suspect]
     Active Substance: BIOTIN
     Indication: Constipation
     Dosage: 5 MG, QD (1 DOSE PER 1 D)
     Route: 042
  315. RIBOFLAVIN [Suspect]
     Active Substance: RIBOFLAVIN
     Indication: Product used for unknown indication
     Dosage: 17 G, QD
     Route: 065
  316. RIBOFLAVIN [Suspect]
     Active Substance: RIBOFLAVIN
     Dosage: UNK
     Route: 048
  317. SODIUM CITRATE [Suspect]
     Active Substance: SODIUM CITRATE
     Indication: Anticoagulant therapy
     Dosage: 2.5 ML
     Route: 065
  318. SODIUM CITRATE [Suspect]
     Active Substance: SODIUM CITRATE
     Indication: Thrombosis
     Dosage: UNK
  319. SODIUM CITRATE [Suspect]
     Active Substance: SODIUM CITRATE
     Dosage: 2.5 MG, QD
     Route: 065
  320. SODIUM CITRATE [Suspect]
     Active Substance: SODIUM CITRATE
     Dosage: UNK,SOLUTION 0-UNASSIGNED , AS REQUIRED
  321. SODIUM CITRATE [Suspect]
     Active Substance: SODIUM CITRATE
     Dosage: 25 ML, PRN
  322. SODIUM CITRATE [Suspect]
     Active Substance: SODIUM CITRATE
     Dosage: 2.5 ML (AS REQUIRED 4 GM/100ML)
     Route: 065
  323. SODIUM CITRATE [Suspect]
     Active Substance: SODIUM CITRATE
     Dosage: 2.5 ML, QD
     Route: 065
  324. SODIUM CITRATE [Suspect]
     Active Substance: SODIUM CITRATE
     Dosage: 2.5 ML, PRN
     Route: 065
     Dates: start: 20200603
  325. SODIUM CITRATE [Suspect]
     Active Substance: SODIUM CITRATE
     Dosage: 2 G
     Route: 042
  326. SODIUM CITRATE [Suspect]
     Active Substance: SODIUM CITRATE
     Route: 065
  327. SODIUM CITRATE [Suspect]
     Active Substance: SODIUM CITRATE
     Route: 065
  328. CALCITRIOL [Suspect]
     Active Substance: CALCITRIOL
     Indication: Vitamin supplementation
     Dosage: 0.25 UG, QD
     Route: 048
  329. CALCITRIOL [Suspect]
     Active Substance: CALCITRIOL
     Indication: Hypovitaminosis
     Dosage: 0.25 MG, QD
     Route: 048
  330. CALCITRIOL [Suspect]
     Active Substance: CALCITRIOL
     Dosage: UNK UNK, QD
     Route: 048
  331. CALCITRIOL [Suspect]
     Active Substance: CALCITRIOL
     Dosage: UNK
     Route: 065
  332. CALCITRIOL [Suspect]
     Active Substance: CALCITRIOL
     Dosage: 0.0.25 MG, (AS REQUIRED)
     Route: 048
  333. CALCITRIOL [Suspect]
     Active Substance: CALCITRIOL
     Dosage: TIME INTERVAL: 0.33333333 DAYS: 500 MG, TID (Q8HR)
     Route: 048
  334. CALCITRIOL [Suspect]
     Active Substance: CALCITRIOL
     Dosage: 0.25 ?G
     Route: 048
  335. CALCITRIOL [Suspect]
     Active Substance: CALCITRIOL
     Route: 048
  336. METAMIZOLE SODIUM [Suspect]
     Active Substance: METAMIZOLE SODIUM
     Indication: Off label use
     Dosage: 5 MG
     Route: 042
  337. METAMIZOLE SODIUM [Suspect]
     Active Substance: METAMIZOLE SODIUM
     Indication: Vitamin supplementation
  338. METAMIZOLE SODIUM [Suspect]
     Active Substance: METAMIZOLE SODIUM
     Indication: Intentional product misuse
  339. SODIUM PICOSULFATE [Suspect]
     Active Substance: SODIUM PICOSULFATE
     Indication: Constipation
     Dosage: 10 MG, QD
  340. SODIUM PICOSULFATE [Suspect]
     Active Substance: SODIUM PICOSULFATE
     Indication: Analgesic therapy
     Dosage: UNK
     Route: 054
  341. SODIUM PICOSULFATE [Suspect]
     Active Substance: SODIUM PICOSULFATE
     Dosage: 10 MG
     Route: 065
  342. SODIUM PICOSULFATE [Suspect]
     Active Substance: SODIUM PICOSULFATE
     Dosage: 10 MG
     Route: 054
  343. SODIUM PICOSULFATE [Suspect]
     Active Substance: SODIUM PICOSULFATE
     Dosage: UNK
  344. SODIUM PICOSULFATE [Suspect]
     Active Substance: SODIUM PICOSULFATE
     Dosage: 10 MG, PRN
     Route: 048
  345. SODIUM PICOSULFATE [Suspect]
     Active Substance: SODIUM PICOSULFATE
     Dosage: 12.5 MG
  346. SODIUM PICOSULFATE [Suspect]
     Active Substance: SODIUM PICOSULFATE
     Dosage: 12.5 G, QM
  347. SODIUM PICOSULFATE [Suspect]
     Active Substance: SODIUM PICOSULFATE
     Dosage: 10 MG, PRN
     Route: 054
  348. SODIUM PICOSULFATE [Suspect]
     Active Substance: SODIUM PICOSULFATE
     Dosage: 10 MG
     Route: 065
  349. SODIUM PICOSULFATE [Suspect]
     Active Substance: SODIUM PICOSULFATE
     Route: 065
  350. ATROVENT [Suspect]
     Active Substance: IPRATROPIUM BROMIDE
     Indication: Sleep disorder therapy
     Dosage: UNK
     Route: 065
  351. ATROVENT [Suspect]
     Active Substance: IPRATROPIUM BROMIDE
     Indication: Somnolence
     Dosage: 1 DF, QID (EVERY 6 HOURS)
     Route: 050
  352. ATROVENT [Suspect]
     Active Substance: IPRATROPIUM BROMIDE
     Indication: Dyspnoea
     Dosage: TIME INTERVAL: 0.33333333 DAYS: UNK UNK, TID
  353. ATROVENT [Suspect]
     Active Substance: IPRATROPIUM BROMIDE
     Dosage: 3 DF, QD (3 DOSE PER 1 D)
     Route: 065
  354. ATROVENT [Suspect]
     Active Substance: IPRATROPIUM BROMIDE
     Dosage: UNK, QID (Q6HR)
     Route: 055
  355. ATROVENT [Suspect]
     Active Substance: IPRATROPIUM BROMIDE
     Dosage: UNK UNK, QD (1 DOSE PER 1 D)
     Route: 055
  356. ATROVENT [Suspect]
     Active Substance: IPRATROPIUM BROMIDE
     Dosage: UNK
     Route: 050
  357. ATROVENT [Suspect]
     Active Substance: IPRATROPIUM BROMIDE
     Dosage: 4 DF
     Route: 055
  358. ATROVENT [Suspect]
     Active Substance: IPRATROPIUM BROMIDE
     Dosage: 1 DF (1 DOSE PER 4 D)
  359. ATROVENT [Suspect]
     Active Substance: IPRATROPIUM BROMIDE
     Dosage: UNK UNK, QID
     Route: 055
  360. ATROVENT [Suspect]
     Active Substance: IPRATROPIUM BROMIDE
     Dosage: UNK
     Route: 055
  361. ATROVENT [Suspect]
     Active Substance: IPRATROPIUM BROMIDE
     Dosage: 1 DF, QID (EVERY 6 HOURS)
  362. ATROVENT [Suspect]
     Active Substance: IPRATROPIUM BROMIDE
     Dosage: UNK, QID (Q6HR)
     Route: 065
  363. ATROVENT [Suspect]
     Active Substance: IPRATROPIUM BROMIDE
     Dosage: UNK, QID
     Route: 055
  364. ATROVENT [Suspect]
     Active Substance: IPRATROPIUM BROMIDE
     Dosage: TIME INTERVAL: 0.33333333 DAYS: UNK, TID (1 EVERY 8 HOURS)
     Route: 050
  365. ATROVENT [Suspect]
     Active Substance: IPRATROPIUM BROMIDE
     Dosage: UNK, QID (Q6HR)
     Route: 050
  366. ATROVENT [Suspect]
     Active Substance: IPRATROPIUM BROMIDE
     Dosage: UNK UNK, QID
     Route: 065
  367. ATROVENT [Suspect]
     Active Substance: IPRATROPIUM BROMIDE
     Dosage: UNK UNK, QID
     Route: 050
  368. ATROVENT [Suspect]
     Active Substance: IPRATROPIUM BROMIDE
     Dosage: 1 DF
     Route: 050
  369. ATROVENT [Suspect]
     Active Substance: IPRATROPIUM BROMIDE
     Dosage: UNK
     Route: 050
  370. ATROVENT [Suspect]
     Active Substance: IPRATROPIUM BROMIDE
     Dosage: 1 DF
     Route: 065
  371. ATROVENT [Suspect]
     Active Substance: IPRATROPIUM BROMIDE
     Dosage: UNK UNK, QID
     Route: 050
  372. ATROVENT [Suspect]
     Active Substance: IPRATROPIUM BROMIDE
     Dosage: 1 DF
     Route: 055
  373. ATROVENT [Suspect]
     Active Substance: IPRATROPIUM BROMIDE
     Dosage: TIME INTERVAL: 0.33333333 DAYS: 1 DF, TID Q8HR
     Route: 065
  374. PYRIDOXINE HYDROCHLORIDE [Suspect]
     Active Substance: PYRIDOXINE HYDROCHLORIDE
     Indication: Analgesic therapy
     Dosage: UNK UNK, QD
     Route: 048
  375. PYRIDOXINE HYDROCHLORIDE [Suspect]
     Active Substance: PYRIDOXINE HYDROCHLORIDE
     Indication: Constipation
     Dosage: UNK
     Route: 055
  376. PYRIDOXINE HYDROCHLORIDE [Suspect]
     Active Substance: PYRIDOXINE HYDROCHLORIDE
     Indication: Vitamin supplementation
     Dosage: UNK UNK, QD
     Route: 048
  377. PYRIDOXINE HYDROCHLORIDE [Suspect]
     Active Substance: PYRIDOXINE HYDROCHLORIDE
     Dosage: UNK UNK, QID
     Route: 048
  378. PYRIDOXINE HYDROCHLORIDE [Suspect]
     Active Substance: PYRIDOXINE HYDROCHLORIDE
     Route: 065
  379. STEARIC ACID [Suspect]
     Active Substance: STEARIC ACID
     Indication: Constipation
     Dosage: UNK
  380. PANADOL [Suspect]
     Active Substance: ACETAMINOPHEN
     Indication: Analgesic therapy
     Dosage: 5 MG, QD
     Route: 042
  381. PANADOL [Suspect]
     Active Substance: ACETAMINOPHEN
     Indication: Off label use
     Dosage: UNK
  382. PANADOL [Suspect]
     Active Substance: ACETAMINOPHEN
     Dosage: 650 MG, QD
     Route: 048
  383. ONDANSETRON [Suspect]
     Active Substance: ONDANSETRON
     Indication: Nausea
     Dosage: TIME INTERVAL: 0.33333333 DAYS: 120 MG, TID
     Route: 042
  384. ONDANSETRON [Suspect]
     Active Substance: ONDANSETRON
     Indication: Off label use
     Dosage: TIME INTERVAL: 0.33333333 DAYS: 36 MG, TID
     Route: 042
  385. ONDANSETRON [Suspect]
     Active Substance: ONDANSETRON
     Indication: Vomiting
     Dosage: TIME INTERVAL: 0.33333333 DAYS: 40 MG, TID (Q8H)
     Route: 042
  386. ONDANSETRON [Suspect]
     Active Substance: ONDANSETRON
     Dosage: TIME INTERVAL: 0.33333333 DAYS: 1 DF, TID
  387. ONDANSETRON [Suspect]
     Active Substance: ONDANSETRON
     Dosage: 60 MG, QD
     Route: 048
  388. ONDANSETRON [Suspect]
     Active Substance: ONDANSETRON
     Dosage: TIME INTERVAL: 0.33333333 DAYS: 41.14 MG, TID (1 EVERY 8 HOUR)
     Route: 042
  389. ONDANSETRON [Suspect]
     Active Substance: ONDANSETRON
     Dosage: 1 DF, QD
     Route: 042
  390. ONDANSETRON [Suspect]
     Active Substance: ONDANSETRON
     Dosage: TIME INTERVAL: 0.33333333 DAYS: 24 MG, TID ( 1 EVERY 8 HR)
     Route: 042
  391. ONDANSETRON [Suspect]
     Active Substance: ONDANSETRON
     Dosage: 4 MG, QD
     Route: 042
  392. ONDANSETRON [Suspect]
     Active Substance: ONDANSETRON
     Dosage: 1 DF, QD
     Route: 048
  393. ONDANSETRON [Suspect]
     Active Substance: ONDANSETRON
     Dosage: 1 DF
     Route: 065
  394. ONDANSETRON [Suspect]
     Active Substance: ONDANSETRON
     Dosage: 41.14 MG (1 IN 7 HOUR)
  395. ONDANSETRON [Suspect]
     Active Substance: ONDANSETRON
     Dosage: 12 DF, QD
     Route: 042
  396. ONDANSETRON [Suspect]
     Active Substance: ONDANSETRON
     Dosage: 1 DF, QID (1 EVERY 6 HOUR)
     Route: 042
  397. ONDANSETRON [Suspect]
     Active Substance: ONDANSETRON
     Dosage: 41.14 MG
  398. ONDANSETRON [Suspect]
     Active Substance: ONDANSETRON
     Dosage: TIME INTERVAL: 0.33333333 DAYS: 12 MG, TID (Q8H)
     Route: 042
  399. ONDANSETRON [Suspect]
     Active Substance: ONDANSETRON
     Dosage: TIME INTERVAL: 0.33333333 DAYS: 4 MG, TID (1 EVERY 8 HR)
     Route: 042
  400. ONDANSETRON [Suspect]
     Active Substance: ONDANSETRON
     Dosage: TIME INTERVAL: 0.33333333 DAYS: 14.14 MG, TID (1 EVERY 8 HOUR)
     Route: 042
  401. ONDANSETRON [Suspect]
     Active Substance: ONDANSETRON
     Dosage: 41.4 MG
     Route: 042
  402. ONDANSETRON [Suspect]
     Active Substance: ONDANSETRON
     Dosage: 1 DF
  403. ONDANSETRON [Suspect]
     Active Substance: ONDANSETRON
     Dosage: TIME INTERVAL: 0.33333333 DAYS: 41.4 MG, TID (1 EVERY 8 HR)
     Route: 042
  404. ONDANSETRON [Suspect]
     Active Substance: ONDANSETRON
     Dosage: TIME INTERVAL: 0.33333333 DAYS: 4 MG, TID
     Route: 042
  405. ONDANSETRON [Suspect]
     Active Substance: ONDANSETRON
     Dosage: TIME INTERVAL: 0.33333333 DAYS: 24 MG, TID
  406. ONDANSETRON [Suspect]
     Active Substance: ONDANSETRON
     Dosage: TIME INTERVAL: 0.33333333 DAYS: UNK UNK, TID
     Route: 042
  407. ONDANSETRON [Suspect]
     Active Substance: ONDANSETRON
     Dosage: TIME INTERVAL: 0.33333333 DAYS: 108 MG, TID
     Route: 042
  408. ONDANSETRON [Suspect]
     Active Substance: ONDANSETRON
     Dosage: TIME INTERVAL: 0.33333333 DAYS: 1 DF, TID ( 1 EVERY 8 HR)
     Route: 042
  409. ONDANSETRON [Suspect]
     Active Substance: ONDANSETRON
     Dosage: TIME INTERVAL: 0.33333333 DAYS: 12 MG, TID
  410. ONDANSETRON [Suspect]
     Active Substance: ONDANSETRON
     Dosage: TIME INTERVAL: 0.33333333 DAYS: 4 MG, TID
  411. ONDANSETRON [Suspect]
     Active Substance: ONDANSETRON
     Dosage: 41.14 MG
     Route: 042
  412. ONDANSETRON [Suspect]
     Active Substance: ONDANSETRON
     Dosage: 14 DF
     Route: 042
  413. ONDANSETRON [Suspect]
     Active Substance: ONDANSETRON
     Dosage: 12 MG
     Route: 042
  414. ONDANSETRON [Suspect]
     Active Substance: ONDANSETRON
     Dosage: TIME INTERVAL: 0.33333333 DAYS: UNK, UNK,TID
  415. ONDANSETRON [Suspect]
     Active Substance: ONDANSETRON
     Dosage: TIME INTERVAL: 0.33333333 DAYS: 40 MG, TID (1 EVERY 8 HOUR)
     Route: 065
  416. ONDANSETRON [Suspect]
     Active Substance: ONDANSETRON
     Dosage: 12 MG, QD
     Route: 042
  417. ONDANSETRON [Suspect]
     Active Substance: ONDANSETRON
     Dosage: 40 MG, QD
  418. ONDANSETRON [Suspect]
     Active Substance: ONDANSETRON
     Dosage: TIME INTERVAL: 0.33333333 DAYS: 12 MG, TID
     Route: 065
  419. ONDANSETRON [Suspect]
     Active Substance: ONDANSETRON
     Dosage: 12 DF
  420. ONDANSETRON [Suspect]
     Active Substance: ONDANSETRON
     Dosage: TIME INTERVAL: 0.33333333 DAYS: 72 MG,TID
  421. ONDANSETRON [Suspect]
     Active Substance: ONDANSETRON
     Dosage: TIME INTERVAL: 0.33333333 DAYS: 36 MG, TID (1 EVERY 8 HOUR)
     Route: 042
  422. ONDANSETRON [Suspect]
     Active Substance: ONDANSETRON
     Dosage: 1 DF
     Route: 042
  423. ONDANSETRON [Suspect]
     Active Substance: ONDANSETRON
     Dosage: 36 MG, QD
  424. ONDANSETRON [Suspect]
     Active Substance: ONDANSETRON
     Dosage: TIME INTERVAL: 0.33333333 DAYS: 8 MG, TID (1 EVERY 8 HR)
     Route: 042
  425. ONDANSETRON [Suspect]
     Active Substance: ONDANSETRON
  426. ONDANSETRON [Suspect]
     Active Substance: ONDANSETRON
     Route: 065
  427. ONDANSETRON [Suspect]
     Active Substance: ONDANSETRON
  428. ONDANSETRON [Suspect]
     Active Substance: ONDANSETRON
     Route: 065
  429. ONDANSETRON [Suspect]
     Active Substance: ONDANSETRON
     Route: 065
  430. CALCIUM GLUCONATE [Suspect]
     Active Substance: CALCIUM GLUCONATE
     Indication: Product used for unknown indication
     Dosage: UNK
     Route: 065
  431. MELATONIN [Suspect]
     Active Substance: MELATONIN
     Indication: Off label use
     Dosage: UNK
     Route: 048
  432. MELATONIN [Suspect]
     Active Substance: MELATONIN
     Indication: Sleep disorder therapy
     Dosage: 3 MG, WE (1/WEEK)
     Route: 048
  433. MELATONIN [Suspect]
     Active Substance: MELATONIN
     Indication: Intentional product misuse
     Dosage: 3 MG, QD
     Route: 061
  434. MELATONIN [Suspect]
     Active Substance: MELATONIN
     Dosage: 3 MG
     Route: 048
  435. MELATONIN [Suspect]
     Active Substance: MELATONIN
     Dosage: 3 MG, QD
     Route: 048
  436. SODIUM CHLORIDE [Suspect]
     Active Substance: SODIUM CHLORIDE
     Indication: Nutritional supplementation
     Dosage: 17 G, QD
     Route: 048
  437. SODIUM CHLORIDE [Suspect]
     Active Substance: SODIUM CHLORIDE
     Indication: Constipation
     Route: 065
  438. SODIUM CHLORIDE [Suspect]
     Active Substance: SODIUM CHLORIDE
     Route: 042
  439. ALOE VERA LEAF [Suspect]
     Active Substance: ALOE VERA LEAF
     Indication: Constipation
     Dosage: 17 MG, QD
  440. DIPYRONE [Suspect]
     Active Substance: DIPYRONE
     Indication: Vitamin supplementation
     Dosage: 1 MG
  441. DIPYRONE [Suspect]
     Active Substance: DIPYRONE
     Dosage: 5 MG, QD (1 EVERY 1 DAY, INTRAMUSCULAR, LIQUID)
     Route: 030
  442. DIPYRONE [Suspect]
     Active Substance: DIPYRONE
     Dosage: UNK, LIQUID
     Route: 042
  443. DIPYRONE [Suspect]
     Active Substance: DIPYRONE
     Route: 065
  444. FISH OIL [Suspect]
     Active Substance: FISH OIL
     Indication: Nutritional supplementation
     Dosage: 12.5 G
  445. OSELTAMIVIR PHOSPHATE [Suspect]
     Active Substance: OSELTAMIVIR PHOSPHATE
     Indication: Product used for unknown indication
     Dosage: UNK
     Route: 048
  446. OSELTAMIVIR PHOSPHATE [Suspect]
     Active Substance: OSELTAMIVIR PHOSPHATE
     Dosage: UNK
     Route: 054
  447. OSELTAMIVIR PHOSPHATE [Suspect]
     Active Substance: OSELTAMIVIR PHOSPHATE
     Dosage: 12.5 MG
     Route: 042
  448. OSELTAMIVIR PHOSPHATE [Suspect]
     Active Substance: OSELTAMIVIR PHOSPHATE
     Dosage: 133 ML
     Route: 054
  449. OSELTAMIVIR PHOSPHATE [Suspect]
     Active Substance: OSELTAMIVIR PHOSPHATE
     Route: 065
  450. GABAPENTIN [Suspect]
     Active Substance: GABAPENTIN
     Indication: Neuralgia
     Dosage: 100 MG, QD
     Route: 048
  451. GABAPENTIN [Suspect]
     Active Substance: GABAPENTIN
     Indication: Off label use
     Dosage: 100 MG, QD
     Route: 055
  452. GABAPENTIN [Suspect]
     Active Substance: GABAPENTIN
     Indication: Bacterial infection
     Dosage: UNK
     Route: 065
  453. GABAPENTIN [Suspect]
     Active Substance: GABAPENTIN
     Indication: Intentional product misuse
     Dosage: UNK UNK, QD
     Route: 048
  454. GABAPENTIN [Suspect]
     Active Substance: GABAPENTIN
     Route: 065
  455. NOREPINEPHRINE [Suspect]
     Active Substance: NOREPINEPHRINE\NOREPINEPHRINE BITARTRATE
     Indication: Intentional product misuse
     Dosage: 3 MG, QD
     Route: 042
  456. NOREPINEPHRINE [Suspect]
     Active Substance: NOREPINEPHRINE\NOREPINEPHRINE BITARTRATE
     Indication: Stress
     Dosage: 1 DF, QD
     Route: 042
  457. NOREPINEPHRINE [Suspect]
     Active Substance: NOREPINEPHRINE\NOREPINEPHRINE BITARTRATE
     Indication: Off label use
     Dosage: UNK
     Route: 048
  458. NOREPINEPHRINE [Suspect]
     Active Substance: NOREPINEPHRINE\NOREPINEPHRINE BITARTRATE
     Dosage: UNK
     Route: 042
  459. NOREPINEPHRINE [Suspect]
     Active Substance: NOREPINEPHRINE\NOREPINEPHRINE BITARTRATE
     Dosage: 3 MG, QD
     Route: 048
  460. NOREPINEPHRINE [Suspect]
     Active Substance: NOREPINEPHRINE\NOREPINEPHRINE BITARTRATE
     Dosage: 1 DF, QD
     Route: 048
  461. NOREPINEPHRINE [Suspect]
     Active Substance: NOREPINEPHRINE\NOREPINEPHRINE BITARTRATE
     Route: 065
  462. POLYETHYLENE GLYCOL [Suspect]
     Active Substance: POLYETHYLENE GLYCOL
     Indication: Iron deficiency
     Dosage: 17 MG, QD, POWDER FOR SOLUTION
  463. POLYETHYLENE GLYCOL [Suspect]
     Active Substance: POLYETHYLENE GLYCOL
     Indication: Constipation
  464. DEXTROSE\POTASSIUM CHLORIDE\SODIUM CHLORIDE\SODIUM CITRATE [Suspect]
     Active Substance: DEXTROSE\POTASSIUM CHLORIDE\SODIUM CHLORIDE\SODIUM CITRATE
     Indication: Nutritional supplementation
     Dosage: UNK
     Route: 042
  465. DEXTROSE\POTASSIUM CHLORIDE\SODIUM CHLORIDE\SODIUM CITRATE [Suspect]
     Active Substance: DEXTROSE\POTASSIUM CHLORIDE\SODIUM CHLORIDE\SODIUM CITRATE
     Indication: Off label use
     Dosage: UNK
     Route: 058
  466. DEXTROSE\POTASSIUM CHLORIDE\SODIUM CHLORIDE\SODIUM CITRATE [Suspect]
     Active Substance: DEXTROSE\POTASSIUM CHLORIDE\SODIUM CHLORIDE\SODIUM CITRATE
     Indication: Intentional product misuse
     Dosage: 1 DF, QD
  467. DEXTROSE\POTASSIUM CHLORIDE\SODIUM CHLORIDE\SODIUM CITRATE [Suspect]
     Active Substance: DEXTROSE\POTASSIUM CHLORIDE\SODIUM CHLORIDE\SODIUM CITRATE
     Dosage: 1.25 G, QD
  468. DEXTROSE\POTASSIUM CHLORIDE\SODIUM CHLORIDE\SODIUM CITRATE [Suspect]
     Active Substance: DEXTROSE\POTASSIUM CHLORIDE\SODIUM CHLORIDE\SODIUM CITRATE
     Dosage: 12.5 MG
     Route: 042
  469. DEXTROSE\POTASSIUM CHLORIDE\SODIUM CHLORIDE\SODIUM CITRATE [Suspect]
     Active Substance: DEXTROSE\POTASSIUM CHLORIDE\SODIUM CHLORIDE\SODIUM CITRATE
     Dosage: 12.5 MG, QD
     Route: 042
  470. DEXTROSE\POTASSIUM CHLORIDE\SODIUM CHLORIDE\SODIUM CITRATE [Suspect]
     Active Substance: DEXTROSE\POTASSIUM CHLORIDE\SODIUM CHLORIDE\SODIUM CITRATE
     Dosage: 12.5 MG
     Route: 042
  471. DEXTROSE\POTASSIUM CHLORIDE\SODIUM CHLORIDE\SODIUM CITRATE [Suspect]
     Active Substance: DEXTROSE\POTASSIUM CHLORIDE\SODIUM CHLORIDE\SODIUM CITRATE
     Dosage: 12.5 G, QD
     Route: 042
  472. ERGOCALCIFEROL [Suspect]
     Active Substance: ERGOCALCIFEROL
     Indication: Product used for unknown indication
     Dosage: UNK
     Route: 065
  473. OTRIVIN [Suspect]
     Active Substance: XYLOMETAZOLINE
     Indication: Dyspnoea
     Dosage: UNK
     Route: 055
  474. OTRIVIN [Suspect]
     Active Substance: XYLOMETAZOLINE
     Dosage: UNK
  475. OTRIVIN [Suspect]
     Active Substance: XYLOMETAZOLINE
     Route: 065
  476. SODIUM PHOSPHATE, MONOBASIC [Suspect]
     Active Substance: SODIUM PHOSPHATE, MONOBASIC
     Indication: Constipation
     Dosage: 133 ML, PRN
     Route: 048
  477. SODIUM PHOSPHATE, MONOBASIC [Suspect]
     Active Substance: SODIUM PHOSPHATE, MONOBASIC
     Dosage: 133 ML, PRN
     Route: 054
  478. SODIUM PHOSPHATE, MONOBASIC [Suspect]
     Active Substance: SODIUM PHOSPHATE, MONOBASIC
     Dosage: 133 ML, PRN
     Route: 058
  479. SODIUM PHOSPHATE, MONOBASIC [Suspect]
     Active Substance: SODIUM PHOSPHATE, MONOBASIC
     Dosage: 133 ML
     Route: 054
  480. SODIUM PHOSPHATE, MONOBASIC [Suspect]
     Active Substance: SODIUM PHOSPHATE, MONOBASIC
     Dosage: 133 MG
     Route: 054
  481. SODIUM PHOSPHATE, MONOBASIC [Suspect]
     Active Substance: SODIUM PHOSPHATE, MONOBASIC
     Dosage: UNK
     Route: 054
  482. SODIUM PHOSPHATE, MONOBASIC [Suspect]
     Active Substance: SODIUM PHOSPHATE, MONOBASIC
     Route: 065
  483. UMECLIDINIUM BROMIDE\VILANTEROL TRIFENATATE [Suspect]
     Active Substance: UMECLIDINIUM BROMIDE\VILANTEROL TRIFENATATE
     Indication: Dyspnoea
     Dosage: 1 IU
     Route: 048
  484. UMECLIDINIUM BROMIDE\VILANTEROL TRIFENATATE [Suspect]
     Active Substance: UMECLIDINIUM BROMIDE\VILANTEROL TRIFENATATE
     Dosage: 1 IU, QD, POWDER FOR ORAL INHALATION
     Route: 048
  485. UMECLIDINIUM BROMIDE\VILANTEROL TRIFENATATE [Suspect]
     Active Substance: UMECLIDINIUM BROMIDE\VILANTEROL TRIFENATATE
     Dosage: UNK
  486. POLYETHYLENE GLYCOL 3350 [Suspect]
     Active Substance: POLYETHYLENE GLYCOL 3350
     Indication: Constipation
     Dosage: UNK UNK, QD
     Route: 048
  487. POLYETHYLENE GLYCOL 3350 [Suspect]
     Active Substance: POLYETHYLENE GLYCOL 3350
     Dosage: 12 G
     Route: 042
  488. POLYETHYLENE GLYCOL 3350 [Suspect]
     Active Substance: POLYETHYLENE GLYCOL 3350
     Dosage: 3 MG
  489. POLYETHYLENE GLYCOL 3350 [Suspect]
     Active Substance: POLYETHYLENE GLYCOL 3350
     Dosage: 17 G, QD
     Route: 048
  490. POLYETHYLENE GLYCOL 3350 [Suspect]
     Active Substance: POLYETHYLENE GLYCOL 3350
     Dosage: 2.5 ML
     Route: 042
  491. POLYETHYLENE GLYCOL 3350 [Suspect]
     Active Substance: POLYETHYLENE GLYCOL 3350
     Dosage: 3 MG, WE
     Route: 048
  492. POLYETHYLENE GLYCOL 3350 [Suspect]
     Active Substance: POLYETHYLENE GLYCOL 3350
     Dosage: 17 MG, QD
     Route: 065
  493. POLYETHYLENE GLYCOL 3350 [Suspect]
     Active Substance: POLYETHYLENE GLYCOL 3350
     Dosage: UNK
     Route: 048
  494. POLYETHYLENE GLYCOL 3350 [Suspect]
     Active Substance: POLYETHYLENE GLYCOL 3350
     Dosage: 17 MG, QD
     Route: 048
  495. POLYETHYLENE GLYCOL 3350 [Suspect]
     Active Substance: POLYETHYLENE GLYCOL 3350
     Dosage: 1 DF, QID
  496. POLYETHYLENE GLYCOL 3350 [Suspect]
     Active Substance: POLYETHYLENE GLYCOL 3350
     Dosage: UNK
     Route: 050
  497. POLYETHYLENE GLYCOL 3350 [Suspect]
     Active Substance: POLYETHYLENE GLYCOL 3350
     Dosage: 17 MG
     Route: 048
  498. BREO ELLIPTA [Suspect]
     Active Substance: FLUTICASONE FUROATE\VILANTEROL TRIFENATATE
     Indication: Dyspnoea
     Dosage: UNK
     Route: 058
  499. BREO ELLIPTA [Suspect]
     Active Substance: FLUTICASONE FUROATE\VILANTEROL TRIFENATATE
     Indication: Nutritional supplementation
     Dosage: 1 IU, QD (1 DOSE PER 1 D)
     Route: 048
  500. BREO ELLIPTA [Suspect]
     Active Substance: FLUTICASONE FUROATE\VILANTEROL TRIFENATATE
     Indication: Intentional product misuse
     Dosage: 1 IU, QD (1 DOSE PER 1 D)
     Route: 055
  501. BREO ELLIPTA [Suspect]
     Active Substance: FLUTICASONE FUROATE\VILANTEROL TRIFENATATE
     Indication: Blood phosphorus increased
     Dosage: UNK
     Route: 065
  502. BREO ELLIPTA [Suspect]
     Active Substance: FLUTICASONE FUROATE\VILANTEROL TRIFENATATE
     Indication: Off label use
     Dosage: 1 IU
     Route: 048
  503. TITANIUM [Suspect]
     Active Substance: TITANIUM
     Indication: Dyspnoea
     Dosage: UNK
     Route: 055
  504. TITANIUM [Suspect]
     Active Substance: TITANIUM
     Dosage: UNK
  505. TITANIUM [Suspect]
     Active Substance: TITANIUM
     Dosage: 1 DF, QD
     Route: 050
  506. ALLOPURINOL [Suspect]
     Active Substance: ALLOPURINOL
     Indication: Intentional product misuse
     Dosage: UNK
  507. ALLOPURINOL [Suspect]
     Active Substance: ALLOPURINOL
     Indication: Blood uric acid increased
     Dosage: 100 MG, QD
     Route: 048
  508. ALLOPURINOL [Suspect]
     Active Substance: ALLOPURINOL
     Indication: Off label use
     Dosage: UNK
  509. ALLOPURINOL [Suspect]
     Active Substance: ALLOPURINOL
     Dosage: 1 DF, QD
     Route: 048
  510. DALTEPARIN SODIUM [Suspect]
     Active Substance: DALTEPARIN SODIUM
     Indication: Thrombosis
     Dosage: UNK
     Route: 065
  511. DALTEPARIN SODIUM [Suspect]
     Active Substance: DALTEPARIN SODIUM
     Indication: Pulmonary embolism
     Dosage: 12.5 ML
  512. DALTEPARIN SODIUM [Suspect]
     Active Substance: DALTEPARIN SODIUM
     Dosage: 2.5 ML
     Route: 065
  513. DALTEPARIN SODIUM [Suspect]
     Active Substance: DALTEPARIN SODIUM
     Dosage: 12.5 MG
     Route: 042
  514. DALTEPARIN SODIUM [Suspect]
     Active Substance: DALTEPARIN SODIUM
     Dosage: 2.5 ML, PRN
  515. DALTEPARIN SODIUM [Suspect]
     Active Substance: DALTEPARIN SODIUM
     Dosage: 2.5 ML
     Route: 058
  516. DALTEPARIN SODIUM [Suspect]
     Active Substance: DALTEPARIN SODIUM
     Dosage: UNK
     Route: 048
  517. TUMS [Suspect]
     Active Substance: CALCIUM CARBONATE
     Indication: Product used for unknown indication
     Dosage: UNK
     Route: 065
  518. .BETA.-CAROTENE [Suspect]
     Active Substance: .BETA.-CAROTENE
     Indication: Nutritional supplementation
     Dosage: 12.5 IU, AS REQUIRED
  519. DOCUSATE SODIUM [Suspect]
     Active Substance: DOCUSATE SODIUM
     Indication: Product used for unknown indication
     Dosage: UNK
     Route: 065
  520. WARFARIN SODIUM [Suspect]
     Active Substance: WARFARIN SODIUM
     Indication: Intentional product misuse
     Dosage: 2 ML, QD
     Route: 048
  521. WARFARIN SODIUM [Suspect]
     Active Substance: WARFARIN SODIUM
     Indication: Off label use
     Dosage: UNK (1 DOSE PER 1 D, INJECTION)
     Route: 048
  522. WARFARIN SODIUM [Suspect]
     Active Substance: WARFARIN SODIUM
     Indication: Thrombosis
     Dosage: 2 G, QD
     Route: 048
  523. WARFARIN SODIUM [Suspect]
     Active Substance: WARFARIN SODIUM
     Dosage: UNK UNK, QD
     Route: 048
  524. WARFARIN SODIUM [Suspect]
     Active Substance: WARFARIN SODIUM
     Dosage: 2 MG
     Route: 048
  525. WARFARIN SODIUM [Suspect]
     Active Substance: WARFARIN SODIUM
     Dosage: 2 G, QD
     Route: 058
  526. WARFARIN SODIUM [Suspect]
     Active Substance: WARFARIN SODIUM
     Dosage: 2 ML
     Route: 048
  527. WARFARIN SODIUM [Suspect]
     Active Substance: WARFARIN SODIUM
     Dosage: 2 ML, QD, 2 G QD
     Route: 065
  528. METAMIZOLE SODIUM [Suspect]
     Active Substance: METAMIZOLE SODIUM
     Indication: Vitamin supplementation
     Route: 042
  529. METAMIZOLE SODIUM [Suspect]
     Active Substance: METAMIZOLE SODIUM
     Route: 048
  530. VILANTEROL TRIFENATATE [Suspect]
     Active Substance: VILANTEROL TRIFENATATE
     Indication: Nutritional supplementation
     Dosage: 1 IU
     Route: 048
  531. VILANTEROL TRIFENATATE [Suspect]
     Active Substance: VILANTEROL TRIFENATATE
     Indication: Dyspnoea
     Dosage: UNK
     Route: 065
  532. VILANTEROL TRIFENATATE [Suspect]
     Active Substance: VILANTEROL TRIFENATATE
     Dosage: 1 IU, QD
     Route: 048
  533. HYDROCORTISONE [Suspect]
     Active Substance: HYDROCORTISONE\HYDROCORTISONE ACETATE
     Indication: Angioedema
     Dosage: UNK
     Route: 051
  534. TRELEGY ELLIPTA [Suspect]
     Active Substance: FLUTICASONE FUROATE\UMECLIDINIUM BROMIDE\VILANTEROL TRIFENATATE
     Indication: Intentional product misuse
     Dosage: UNK
     Route: 055
  535. TRELEGY ELLIPTA [Suspect]
     Active Substance: FLUTICASONE FUROATE\UMECLIDINIUM BROMIDE\VILANTEROL TRIFENATATE
     Indication: Off label use
  536. ASCORBIC ACID [Suspect]
     Active Substance: ASCORBIC ACID
     Indication: Intentional product misuse
  537. ASCORBIC ACID [Suspect]
     Active Substance: ASCORBIC ACID
     Indication: Constipation
  538. ASCORBIC ACID [Suspect]
     Active Substance: ASCORBIC ACID
     Indication: Vitamin supplementation
     Route: 065
  539. ASCORBIC ACID [Suspect]
     Active Substance: ASCORBIC ACID
     Indication: Off label use
     Dosage: 30 MG, QD
     Dates: start: 20200527
  540. ASCORBIC ACID [Suspect]
     Active Substance: ASCORBIC ACID
     Dosage: UNK
     Route: 065
  541. ASCORBIC ACID [Suspect]
     Active Substance: ASCORBIC ACID
     Dosage: 17 G, QD
     Route: 048
  542. ASCORBIC ACID [Suspect]
     Active Substance: ASCORBIC ACID
     Route: 065
  543. POTASSIUM CHLORIDE [Suspect]
     Active Substance: POTASSIUM CHLORIDE
     Indication: Constipation
     Route: 065
  544. POTASSIUM CHLORIDE [Suspect]
     Active Substance: POTASSIUM CHLORIDE
     Indication: Product used for unknown indication
     Route: 048
  545. POTASSIUM CHLORIDE [Suspect]
     Active Substance: POTASSIUM CHLORIDE
     Route: 048
  546. POTASSIUM CHLORIDE [Suspect]
     Active Substance: POTASSIUM CHLORIDE
     Route: 065
  547. POTASSIUM CHLORIDE [Suspect]
     Active Substance: POTASSIUM CHLORIDE
     Route: 065
  548. AMLODIPINE BESYLATE [Suspect]
     Active Substance: AMLODIPINE BESYLATE
     Indication: Product used for unknown indication
     Route: 065
  549. DEXLANSOPRAZOLE [Suspect]
     Active Substance: DEXLANSOPRAZOLE
     Indication: Product used for unknown indication
     Dosage: CAPSULE, DELAYED RELEASE
     Route: 065
  550. DEXLANSOPRAZOLE [Suspect]
     Active Substance: DEXLANSOPRAZOLE
     Dosage: ENTERIC COATED TABLET
     Route: 065
  551. THEOPHYLLINE [Suspect]
     Active Substance: THEOPHYLLINE
     Indication: Product used for unknown indication
     Route: 065
  552. ALUMINUM HYDROXIDE\MAGNESIUM HYDROXIDE [Suspect]
     Active Substance: ALUMINUM HYDROXIDE\MAGNESIUM HYDROXIDE
     Indication: Intentional product misuse
  553. ALUMINUM HYDROXIDE\MAGNESIUM HYDROXIDE [Suspect]
     Active Substance: ALUMINUM HYDROXIDE\MAGNESIUM HYDROXIDE
     Indication: Constipation
     Dosage: 133 ML, AS REQUIRED
     Route: 054
  554. DEXTROSE\HEPARIN SODIUM [Suspect]
     Active Substance: DEXTROSE\HEPARIN SODIUM
     Indication: Intentional product misuse
     Dosage: 50 ML, QD
     Route: 065
  555. DEXTROSE\HEPARIN SODIUM [Suspect]
     Active Substance: DEXTROSE\HEPARIN SODIUM
     Indication: Anticoagulant therapy
     Dosage: 250 ML
     Route: 042
  556. DEXTROSE\HEPARIN SODIUM [Suspect]
     Active Substance: DEXTROSE\HEPARIN SODIUM
     Indication: Off label use
     Dosage: 250 ML
     Route: 017
  557. DEXTROSE\HEPARIN SODIUM [Suspect]
     Active Substance: DEXTROSE\HEPARIN SODIUM
     Dosage: 250 ML, PRN
     Route: 042
  558. DEXTROSE\HEPARIN SODIUM [Suspect]
     Active Substance: DEXTROSE\HEPARIN SODIUM
     Dosage: UNK
     Route: 065
  559. DEXTROSE\HEPARIN SODIUM [Suspect]
     Active Substance: DEXTROSE\HEPARIN SODIUM
     Dosage: 250 ML, QD (1 EVERY 1 DAYS)
     Route: 042
  560. DEXTROSE\HEPARIN SODIUM [Suspect]
     Active Substance: DEXTROSE\HEPARIN SODIUM
     Dosage: 50 ML
     Route: 042
  561. DEXTROSE\HEPARIN SODIUM [Suspect]
     Active Substance: DEXTROSE\HEPARIN SODIUM
     Dosage: 50 ML, QD
     Route: 042
  562. DEXTROSE\HEPARIN SODIUM [Suspect]
     Active Substance: DEXTROSE\HEPARIN SODIUM
     Dosage: 50 ML, INTRAVENOUS
     Route: 042
  563. ZOCOR [Suspect]
     Active Substance: SIMVASTATIN
     Indication: Vitamin supplementation
     Dosage: UNK UNK, QD
     Route: 048
  564. ZOCOR [Suspect]
     Active Substance: SIMVASTATIN
     Indication: Off label use
     Dosage: UNK
     Route: 065
  565. ZOCOR [Suspect]
     Active Substance: SIMVASTATIN
     Indication: Blood cholesterol increased
     Dosage: 40 MG, QD
     Route: 048
  566. ZOCOR [Suspect]
     Active Substance: SIMVASTATIN
     Indication: Intentional product misuse
  567. CHLORAMPHENICOL [Suspect]
     Active Substance: CHLORAMPHENICOL
     Indication: Product used for unknown indication
     Dosage: UNK
     Route: 065
  568. DISTIGMINE BROMIDE [Suspect]
     Active Substance: DISTIGMINE BROMIDE
     Indication: Off label use
     Dosage: 1 IU, QD (1 INTERNATIONAL UNIT, QD)
     Route: 048
  569. DISTIGMINE BROMIDE [Suspect]
     Active Substance: DISTIGMINE BROMIDE
     Indication: Dyspnoea
     Dosage: UNK
     Route: 065

REACTIONS (53)
  - Ventricular fibrillation [Fatal]
  - Death [Fatal]
  - Hypertension [Fatal]
  - Gout [Fatal]
  - Vomiting [Fatal]
  - Activated partial thromboplastin time prolonged [Fatal]
  - Blood phosphorus increased [Fatal]
  - Incorrect route of product administration [Fatal]
  - Hypophosphataemia [Fatal]
  - Ascites [Fatal]
  - Bacterial infection [Fatal]
  - Chronic obstructive pulmonary disease [Fatal]
  - Off label use [Fatal]
  - Dry mouth [Fatal]
  - Pulmonary embolism [Fatal]
  - Cardiogenic shock [Fatal]
  - Product use in unapproved indication [Fatal]
  - Thrombosis [Fatal]
  - Constipation [Fatal]
  - Stress [Fatal]
  - Abdominal pain [Fatal]
  - Sleep disorder [Fatal]
  - Drug ineffective [Fatal]
  - Blood cholesterol increased [Fatal]
  - Sleep disorder therapy [Fatal]
  - Ulcer [Fatal]
  - Drug intolerance [Fatal]
  - Drug therapy [Fatal]
  - Neuralgia [Fatal]
  - Multiple organ dysfunction syndrome [Fatal]
  - Nausea [Fatal]
  - Iron deficiency [Fatal]
  - Abdominal distension [Fatal]
  - Anaemia [Fatal]
  - Condition aggravated [Fatal]
  - Hyperlipidaemia [Fatal]
  - End stage renal disease [Fatal]
  - Myasthenia gravis [Fatal]
  - Analgesic therapy [Fatal]
  - Hyponatraemia [Fatal]
  - Blood uric acid increased [Fatal]
  - Swelling [Fatal]
  - Hyperphosphataemia [Fatal]
  - General physical health deterioration [Fatal]
  - Sepsis [Fatal]
  - Intentional product misuse [Fatal]
  - Appendicitis [Fatal]
  - Appendicolith [Fatal]
  - Dyspnoea [Fatal]
  - Somnolence [Fatal]
  - Aortic stenosis [Fatal]
  - Diabetes mellitus [Fatal]
  - Drug hypersensitivity [Fatal]

NARRATIVE: CASE EVENT DATE: 20200601
